FAERS Safety Report 17920105 (Version 1)
Quarter: 2020Q2

REPORT INFORMATION
  Report Type: Spontaneous
  Country: US (occurrence: US)
  Receive Date: 20200620
  Receipt Date: 20200620
  Transmission Date: 20200714
  Serious: Yes (Hospitalization)
  Sender: FDA-Public Use
  Company Number: US-EMCURE PHARMACEUTICALS LTD-2019-EPL-001727

PATIENT
  Age: 18 Year
  Sex: Female
  Weight: 42.18 kg

DRUGS (2)
  1. CETIRIZINE [Suspect]
     Active Substance: CETIRIZINE HYDROCHLORIDE
     Indication: ABDOMINAL PAIN
     Dosage: 10-16 TABLETS (APPROXIMATELY 120 TO 180 MG)
     Route: 048
  2. CETIRIZINE [Suspect]
     Active Substance: CETIRIZINE HYDROCHLORIDE
     Dosage: 2 DOSAGE FORM
     Route: 048

REACTIONS (10)
  - Blood creatinine increased [Recovered/Resolved]
  - Abdominal pain [Unknown]
  - Anxiety [Unknown]
  - Blood bilirubin increased [Recovering/Resolving]
  - Methaemoglobinaemia [Recovering/Resolving]
  - Intentional overdose [Unknown]
  - Blood bicarbonate decreased [Unknown]
  - Off label use [Unknown]
  - Nausea [Unknown]
  - Tremor [Unknown]
